FAERS Safety Report 5840235-4 (Version None)
Quarter: 2008Q3

REPORT INFORMATION
  Report Type: 
  Country: None (occurrence: None)
  Receive Date: 20080730
  Receipt Date: 20080403
  Transmission Date: 20090109
  Serious: No
  Sender: FDA-Public Use
  Company Number: 2008-US-000292

PATIENT
  Age: 13 Year
  Sex: Male
  Weight: 33.1 kg

DRUGS (2)
  1. INCRELEX [Suspect]
     Indication: INSULIN-LIKE GROWTH FACTOR DECREASED
     Dosage: 38 UNITS, BID
     Dates: start: 20080201
  2. STRATTERA [Concomitant]

REACTIONS (1)
  - INCREASED APPETITE [None]
